FAERS Safety Report 20862114 (Version 1)
Quarter: 2022Q2

REPORT INFORMATION
  Report Type: Spontaneous
  Country: IN (occurrence: IN)
  Receive Date: 20220523
  Receipt Date: 20220523
  Transmission Date: 20220720
  Serious: Yes (Other)
  Sender: FDA-Public Use
  Company Number: IN-PFIZER INC-2020298975

PATIENT
  Age: 58 Year
  Sex: Female

DRUGS (4)
  1. PALBOCICLIB [Suspect]
     Active Substance: PALBOCICLIB
     Indication: Breast cancer metastatic
     Dosage: 125 MG, ONCE DAILY, 3 WEEKS ON, 1 WEEK OFF
     Route: 048
     Dates: start: 20190726
  2. LETROZOLE [Suspect]
     Active Substance: LETROZOLE
     Dosage: 2.5 MG, 1X/DAY
     Route: 048
  3. CALCIUM CARBONATE\CHOLECALCIFEROL [Concomitant]
     Active Substance: CALCIUM CARBONATE\CHOLECALCIFEROL
     Dosage: UNK, DAILY
  4. MEGESTROL ACETATE [Concomitant]
     Active Substance: MEGESTROL ACETATE

REACTIONS (6)
  - Subdural haematoma [Unknown]
  - Neoplasm progression [Unknown]
  - Anaemia [Unknown]
  - Pain [Unknown]
  - Bone swelling [Unknown]
  - Breast enlargement [Unknown]
